FAERS Safety Report 16828909 (Version 1)
Quarter: 2019Q3

REPORT INFORMATION
  Report Type: Spontaneous
  Country: US (occurrence: US)
  Receive Date: 20190919
  Receipt Date: 20190919
  Transmission Date: 20191005
  Serious: No
  Sender: FDA-Public Use
  Company Number: US-ASTRAZENECA-2019SF21145

PATIENT
  Age: 28128 Day
  Sex: Male
  Weight: 104.3 kg

DRUGS (3)
  1. BYDUREON [Suspect]
     Active Substance: EXENATIDE
     Indication: TYPE 2 DIABETES MELLITUS
     Route: 058
     Dates: start: 2018
  2. NOVOLOG [Concomitant]
     Active Substance: INSULIN ASPART
  3. ACTOS [Concomitant]
     Active Substance: PIOGLITAZONE HYDROCHLORIDE
     Indication: DIABETES MELLITUS
     Route: 048

REACTIONS (5)
  - Blood glucose increased [Recovered/Resolved]
  - Device malfunction [Unknown]
  - Blood glucose decreased [Recovered/Resolved]
  - Injection site mass [Unknown]
  - Product dose omission [Unknown]

NARRATIVE: CASE EVENT DATE: 20190819
